FAERS Safety Report 6044036-6 (Version None)
Quarter: 2009Q1

REPORT INFORMATION
  Report Type: 
  Country: None (occurrence: None)
  Receive Date: 20090120
  Receipt Date: 20090116
  Transmission Date: 20090719
  Serious: Yes (Death)
  Sender: FDA-Public Use
  Company Number: JP-JNJFOC-20081205048

PATIENT
  Sex: Male
  Weight: 93 kg

DRUGS (6)
  1. RISPERDAL [Suspect]
     Indication: SCHIZOPHRENIA
     Route: 048
  2. RISPERDAL [Suspect]
     Route: 048
  3. DEPAKENE [Suspect]
     Indication: SCHIZOPHRENIA
     Route: 048
  4. LANDSEN [Suspect]
     Indication: AKATHISIA
     Route: 048
  5. BENZALIN [Suspect]
     Indication: INSOMNIA
     Route: 048
  6. ARTANE [Suspect]
     Indication: PARKINSONISM
     Route: 048

REACTIONS (1)
  - CARDIAC FAILURE ACUTE [None]
